FAERS Safety Report 4788305-6 (Version None)
Quarter: 2005Q4

REPORT INFORMATION
  Report Type: 
  Country: None (occurrence: None)
  Receive Date: 20051003
  Receipt Date: 20050926
  Transmission Date: 20060501
  Serious: Yes (Death, Disabling, Other)
  Sender: FDA-Public Use
  Company Number: 2005114208

PATIENT
  Age: 56 Year
  Sex: Male
  Weight: 113.3993 kg

DRUGS (6)
  1. LIPITOR [Suspect]
     Indication: BLOOD CHOLESTEROL INCREASED
     Dosage: 10 MG (10 MG, 1 IN 1 D), ORAL
     Route: 048
     Dates: start: 20020101, end: 20050101
  2. TIAZAC [Suspect]
     Indication: HYPERTENSION
     Dosage: 420 MG (420 MG, 1 IN 1 D), ORAL
     Route: 048
  3. FUROSEMIDE [Concomitant]
  4. KLOR-CON [Concomitant]
  5. ATENOLOL [Concomitant]
  6. COZAAR [Concomitant]

REACTIONS (12)
  - ARTHRITIS [None]
  - BLOOD GLUCOSE INCREASED [None]
  - CARDIOMEGALY [None]
  - DIFFICULTY IN WALKING [None]
  - DRUG EFFECT DECREASED [None]
  - DRUG INTERACTION [None]
  - IMMOBILE [None]
  - MYALGIA [None]
  - OEDEMA PERIPHERAL [None]
  - PAIN IN EXTREMITY [None]
  - PULMONARY THROMBOSIS [None]
  - THROMBOSIS [None]
